FAERS Safety Report 9199379 (Version 1)
Quarter: 2013Q1

REPORT INFORMATION
  Report Type: Spontaneous
  Country: US (occurrence: US)
  Receive Date: 20130329
  Receipt Date: 20130329
  Transmission Date: 20140127
  Serious: No
  Sender: FDA-Public Use
  Company Number: US-009507513-1303USA012024

PATIENT
  Age: 20 Year
  Sex: Female
  Weight: 90.7 kg

DRUGS (1)
  1. NEXPLANON [Suspect]
     Indication: CONTRACEPTION
     Dosage: EVERY 3 YEARS
     Route: 059
     Dates: start: 20120918

REACTIONS (5)
  - Blood pressure increased [Unknown]
  - Migraine [Unknown]
  - Metrorrhagia [Unknown]
  - Mood altered [Unknown]
  - Libido decreased [Unknown]
